FAERS Safety Report 18105510 (Version 4)
Quarter: 2022Q2

REPORT INFORMATION
  Report Type: Spontaneous
  Country: US (occurrence: US)
  Receive Date: 20200804
  Receipt Date: 20220616
  Transmission Date: 20220721
  Serious: No
  Sender: FDA-Public Use
  Company Number: US-SA-2020SA201263

PATIENT
  Age: 56 Year
  Sex: Female
  Weight: 77.098 kg

DRUGS (1)
  1. DUPIXENT [Suspect]
     Active Substance: DUPILUMAB
     Indication: Dermatitis atopic
     Dosage: 300 MG, QOW
     Route: 058
     Dates: start: 202001

REACTIONS (8)
  - Eczema eyelids [Unknown]
  - Swelling of eyelid [Unknown]
  - Eyelid irritation [Unknown]
  - Eyelids pruritus [Unknown]
  - Eye pruritus [Unknown]
  - Peripheral swelling [Unknown]
  - Muscle tightness [Unknown]
  - Vision blurred [Unknown]

NARRATIVE: CASE EVENT DATE: 20200101
